FAERS Safety Report 24569318 (Version 1)
Quarter: 2024Q4

REPORT INFORMATION
  Report Type: Spontaneous
  Country: US (occurrence: None)
  Receive Date: 20241030
  Receipt Date: 20241030
  Transmission Date: 20250114
  Serious: Yes (Hospitalization)
  Sender: Public
  Company Number: None

PATIENT
  Age: 68 Year
  Sex: Female

DRUGS (3)
  1. TAVNEOS [Suspect]
     Active Substance: AVACOPAN
     Dosage: FREQUENCY : TWICE A DAY;?
     Route: 048
     Dates: start: 20230328
  2. RITUXAN [Suspect]
     Active Substance: RITUXIMAB
     Dates: start: 20230328
  3. LOSARTAN [Suspect]
     Active Substance: LOSARTAN

REACTIONS (4)
  - Hypersensitivity [None]
  - Hypotension [None]
  - Infusion related reaction [None]
  - Therapy change [None]

NARRATIVE: CASE EVENT DATE: 20241030
